FAERS Safety Report 4811027-X (Version None)
Quarter: 2005Q4

REPORT INFORMATION
  Report Type: 
  Country: None (occurrence: None)
  Receive Date: 20051027
  Receipt Date: 20051020
  Transmission Date: 20060501
  Serious: Yes (Other)
  Sender: FDA-Public Use
  Company Number: DE-JNJFOC-20051004360

PATIENT

DRUGS (1)
  1. INFLIXIMAB [Suspect]
     Dosage: FROM WEEK 54 TO WEEK 94
     Route: 042

REACTIONS (2)
  - BENIGN NEOPLASM [None]
  - NEOPLASM [None]
